FAERS Safety Report 17110136 (Version 1)
Quarter: 2019Q4

REPORT INFORMATION
  Report Type: Spontaneous
  Country: US (occurrence: US)
  Receive Date: 20191204
  Receipt Date: 20191204
  Transmission Date: 20200122
  Serious: Yes (Other)
  Sender: FDA-Public Use
  Company Number: US-PFIZER INC-2018424312

PATIENT
  Age: 66 Year
  Sex: Female
  Weight: 54.43 kg

DRUGS (14)
  1. LINZESS [Concomitant]
     Active Substance: LINACLOTIDE
     Dosage: UNK
  2. TOLTERODINE [Concomitant]
     Active Substance: TOLTERODINE
     Dosage: UNK
  3. HCTZ [Concomitant]
     Active Substance: HYDROCHLOROTHIAZIDE
     Dosage: UNK
  4. LUNESTA [Concomitant]
     Active Substance: ESZOPICLONE
     Dosage: UNK
  5. VALSARTAN. [Concomitant]
     Active Substance: VALSARTAN
     Dosage: UNK
  6. NADOLOL. [Concomitant]
     Active Substance: NADOLOL
     Dosage: UNK
  7. SYNTHROID [Concomitant]
     Active Substance: LEVOTHYROXINE SODIUM
     Indication: THYROID OPERATION
     Dosage: 150 UG, 1X/DAY
  8. ATORVASTATIN [Concomitant]
     Active Substance: ATORVASTATIN
     Dosage: UNK
  9. XELJANZ [Suspect]
     Active Substance: TOFACITINIB CITRATE
     Indication: RHEUMATOID ARTHRITIS
     Dosage: 5 MG, 2X/DAY
     Route: 048
     Dates: end: 201907
  10. NEXIUM I.V. [Concomitant]
     Active Substance: ESOMEPRAZOLE SODIUM
     Dosage: UNK
  11. FLOCET [FLUOXETINE HYDROCHLORIDE] [Concomitant]
     Dosage: UNK
  12. FLEXERIL [CEFIXIME] [Concomitant]
     Active Substance: CEFIXIME
     Dosage: UNK
  13. LEXAPRO [Concomitant]
     Active Substance: ESCITALOPRAM OXALATE
     Dosage: UNK
  14. ESTRACE [Concomitant]
     Active Substance: ESTRADIOL
     Dosage: UNK

REACTIONS (5)
  - Haemoglobin decreased [Unknown]
  - Gastric ulcer [Unknown]
  - Ulcer haemorrhage [Recovered/Resolved]
  - Red blood cell count decreased [Unknown]
  - Blood count abnormal [Unknown]

NARRATIVE: CASE EVENT DATE: 2018
